FAERS Safety Report 6031743-4 (Version None)
Quarter: 2009Q1

REPORT INFORMATION
  Report Type: 
  Country: None (occurrence: None)
  Receive Date: 20090107
  Receipt Date: 20090107
  Transmission Date: 20090719
  Serious: Yes (Other)
  Sender: FDA-Public Use
  Company Number: None

PATIENT
  Sex: Female

DRUGS (3)
  1. BUPROPION HCL [Suspect]
     Indication: PREMENSTRUAL SYNDROME
     Dosage: 150 MG ONCE QD PO
     Route: 048
     Dates: start: 20040326, end: 20040427
  2. BUPROPION HCL [Suspect]
     Indication: PREMENSTRUAL SYNDROME
     Dosage: 150 MG ONCE QD PO
     Route: 048
     Dates: start: 20070406, end: 20070411
  3. LEXAPRO [Suspect]
     Indication: SEASONAL AFFECTIVE DISORDER
     Dosage: 10 MG ONCE PO QD
     Route: 048
     Dates: start: 20071114, end: 20080827

REACTIONS (6)
  - DIZZINESS [None]
  - FEELING ABNORMAL [None]
  - GASTRIC DISORDER [None]
  - HEADACHE [None]
  - NAUSEA [None]
  - VOMITING [None]
